FAERS Safety Report 24668461 (Version 1)
Quarter: 2024Q4

REPORT INFORMATION
  Report Type: Spontaneous
  Country: US (occurrence: US)
  Receive Date: 20241127
  Receipt Date: 20241127
  Transmission Date: 20250115
  Serious: Yes (Other)
  Sender: ZYDUS PHARM
  Company Number: US-CADILA HEALTHCARE LIMITED-US-ZYDUS-115052

PATIENT

DRUGS (2)
  1. METHYLPREDNISOLONE [Suspect]
     Active Substance: METHYLPREDNISOLONE
     Indication: Haemophagocytic lymphohistiocytosis
     Dosage: UNK
     Route: 065
  2. IMMUNE GLOBULIN [Concomitant]
     Indication: Haemophagocytic lymphohistiocytosis
     Dosage: UNK
     Route: 065

REACTIONS (8)
  - Drug withdrawal syndrome [Unknown]
  - Hypotension [Unknown]
  - Lactic acidosis [Unknown]
  - Pancytopenia [Unknown]
  - Tachycardia [Unknown]
  - Cytomegalovirus viraemia [Unknown]
  - Pneumonia bacterial [Unknown]
  - Urinary tract infection bacterial [Unknown]
